FAERS Safety Report 4284364-8 (Version None)
Quarter: 2004Q1

REPORT INFORMATION
  Report Type: 
  Country: None (occurrence: None)
  Receive Date: 20040130
  Receipt Date: 20040127
  Transmission Date: 20041129
  Serious: Yes (Hospitalization)
  Sender: FDA-Public Use
  Company Number: US-JNJFOC-20031005967

PATIENT
  Age: 84 Year
  Sex: Female

DRUGS (5)
  1. DURAGESIC [Suspect]
     Indication: PAIN
     Dosage: 50 UG/HR, 1 IN 72 HOUR, TRANSMDERMAL
     Route: 062
     Dates: start: 20030401
  2. NORVASC (AMLODIPINE BESILATE) TABLETS [Concomitant]
  3. ROBAXIN (METHOCARBAMOL) TABLETS [Concomitant]
  4. KETOPROFIN (KETOPROFEN) TABLETS [Concomitant]
  5. ZANAFLEX (TIZANIDINE HYDROCHLORIDE) TABLETS [Concomitant]

REACTIONS (1)
  - DEEP VEIN THROMBOSIS [None]
